FAERS Safety Report 7611527-3 (Version None)
Quarter: 2011Q3

REPORT INFORMATION
  Report Type: 
  Country: None (occurrence: None)
  Receive Date: 20110715
  Receipt Date: 20110630
  Transmission Date: 20111222
  Serious: Yes (Hospitalization)
  Sender: FDA-Public Use
  Company Number: ES-WATSON-2011-10198

PATIENT
  Age: 46 Year
  Sex: Female

DRUGS (3)
  1. TOPIRAMATE [Suspect]
     Indication: CONVULSION
     Dosage: 200 MG, DAILY
     Route: 048
  2. DIVALPROEX SODIUM [Suspect]
     Indication: CONVULSION
     Dosage: 1500 MG, DAILY
     Route: 048
  3. PHENOBARBITAL TAB [Suspect]
     Indication: CONVULSION
     Dosage: 100 MG, DAILY
     Route: 048

REACTIONS (2)
  - DRUG INTERACTION [None]
  - HYPERAMMONAEMIC ENCEPHALOPATHY [None]
